FAERS Safety Report 16021985 (Version 1)
Quarter: 2019Q1

REPORT INFORMATION
  Report Type: Spontaneous
  Country: GB (occurrence: GB)
  Receive Date: 20190301
  Receipt Date: 20190301
  Transmission Date: 20190418
  Serious: Yes (Other)
  Sender: FDA-Public Use
  Company Number: GB-ROCHE-2240143

PATIENT
  Age: 60 Year
  Sex: Male

DRUGS (3)
  1. ATEZOLIZUMAB. [Suspect]
     Active Substance: ATEZOLIZUMAB
     Indication: RENAL CANCER
     Route: 065
  2. BEVACIZUMAB. [Suspect]
     Active Substance: BEVACIZUMAB
     Indication: RENAL CANCER
     Route: 065
  3. RO 6874281 (FAP IL2V MAB) [Suspect]
     Active Substance: RO-6874281
     Indication: RENAL CANCER
     Route: 065
     Dates: start: 20180320

REACTIONS (10)
  - Asthenia [Unknown]
  - Disability [Unknown]
  - Hypoacusis [Unknown]
  - Balance disorder [Unknown]
  - Visual impairment [Unknown]
  - Condition aggravated [Unknown]
  - General physical health deterioration [Unknown]
  - Gait inability [Unknown]
  - Headache [Unknown]
  - Mobility decreased [Unknown]
